FAERS Safety Report 21534103 (Version 1)
Quarter: 2022Q4

REPORT INFORMATION
  Report Type: Spontaneous
  Country: US (occurrence: US)
  Receive Date: 20221101
  Receipt Date: 20221101
  Transmission Date: 20230113
  Serious: No
  Sender: FDA-Public Use
  Company Number: US-PARATEK PHARMACEUTICALS, INC.-2021PTK00207

PATIENT
  Age: 13 Year
  Sex: Female

DRUGS (8)
  1. NUZYRA [Suspect]
     Active Substance: OMADACYCLINE
     Indication: Pneumonia bacterial
     Dosage: 300 MG, 2X/DAY ON DAY ONE
     Route: 048
     Dates: start: 202110, end: 202110
  2. NUZYRA [Suspect]
     Active Substance: OMADACYCLINE
     Dosage: 300 MG, 1X/DAY
     Route: 048
     Dates: start: 202110
  3. LAMICTAL [Concomitant]
     Active Substance: LAMOTRIGINE
  4. ZOLOFT [Concomitant]
     Active Substance: SERTRALINE HYDROCHLORIDE
  5. ^OFILEER^ [Concomitant]
  6. ^BEEILER^ [Concomitant]
  7. ^HEALTHMAX^ [Concomitant]
     Dosage: 30 UNK, 3X/DAY
  8. ^MYROPUL^ [Concomitant]
     Dosage: UNK, 1X/DAY

REACTIONS (3)
  - Abdominal pain upper [Unknown]
  - Diarrhoea [Unknown]
  - Product administered to patient of inappropriate age [Not Recovered/Not Resolved]

NARRATIVE: CASE EVENT DATE: 20211001
